FAERS Safety Report 10027589 (Version 3)
Quarter: 2014Q2

REPORT INFORMATION
  Report Type: Spontaneous
  Country: US (occurrence: US)
  Receive Date: 20140321
  Receipt Date: 20140410
  Transmission Date: 20141212
  Serious: Yes (Hospitalization, Other)
  Sender: FDA-Public Use
  Company Number: US-PFIZER INC-2014080932

PATIENT
  Age: 53 Year
  Sex: Male
  Weight: 68 kg

DRUGS (5)
  1. CHANTIX [Suspect]
     Indication: SMOKING CESSATION THERAPY
     Dosage: 0.5 MG, 1X/DAY
     Route: 048
     Dates: start: 20140310, end: 20140312
  2. CHANTIX [Suspect]
     Dosage: 0.5 MG, 2X/DAY
     Route: 048
     Dates: start: 20140313, end: 20140313
  3. CHANTIX [Suspect]
     Dosage: 0.5 MG, 1X/DAY
     Route: 048
     Dates: start: 20140314, end: 20140314
  4. CHANTIX [Suspect]
     Dosage: 0.5 MG, 2X/DAY
     Route: 048
     Dates: start: 20140315, end: 20140315
  5. HYDROCODONE [Concomitant]
     Indication: PAIN
     Dosage: ^5/325 MG^ FREQUENCY UNKNOWN
     Dates: start: 201403

REACTIONS (10)
  - Urinary retention [Not Recovered/Not Resolved]
  - Renal pain [Unknown]
  - Gait disturbance [Unknown]
  - Pain [Unknown]
  - Heart rate abnormal [Unknown]
  - Abnormal dreams [Unknown]
  - Diarrhoea [Unknown]
  - Activities of daily living impaired [Not Recovered/Not Resolved]
  - Feeling abnormal [Not Recovered/Not Resolved]
  - Impaired driving ability [Not Recovered/Not Resolved]
